FAERS Safety Report 7870082-3 (Version None)
Quarter: 2011Q4

REPORT INFORMATION
  Report Type: 
  Country: None (occurrence: None)
  Receive Date: 20111028
  Receipt Date: 20110113
  Transmission Date: 20120403
  Serious: No
  Sender: FDA-Public Use
  Company Number: US-AMGEN-USASP2011002345

PATIENT
  Age: 64 Year
  Sex: Female

DRUGS (1)
  1. ENBREL [Suspect]
     Indication: RHEUMATOID ARTHRITIS
     Dosage: 50 MG, QWK
     Dates: start: 20090821

REACTIONS (5)
  - UPPER RESPIRATORY TRACT INFECTION [None]
  - UPPER RESPIRATORY TRACT CONGESTION [None]
  - DEVICE BREAKAGE [None]
  - RESPIRATORY TRACT CONGESTION [None]
  - NASOPHARYNGITIS [None]
